FAERS Safety Report 4757649-6 (Version None)
Quarter: 2005Q3

REPORT INFORMATION
  Report Type: 
  Country: None (occurrence: None)
  Receive Date: 20050831
  Receipt Date: 20050812
  Transmission Date: 20060218
  Serious: Yes (Other)
  Sender: FDA-Public Use
  Company Number: US-GLAXOSMITHKLINE-A0570042A

PATIENT
  Age: 42 Year
  Sex: Male

DRUGS (5)
  1. EPIVIR [Suspect]
     Indication: HEPATITIS B
     Dosage: 100MG PER DAY
     Route: 048
     Dates: start: 20050721, end: 20050811
  2. CARBATROL [Concomitant]
  3. LAMICTAL [Concomitant]
  4. COMBIVENT [Concomitant]
  5. INSULIN [Concomitant]

REACTIONS (1)
  - CONVULSION [None]
